FAERS Safety Report 9732950 (Version 1)
Quarter: 2013Q4

REPORT INFORMATION
  Report Type: Spontaneous
  Country: US (occurrence: US)
  Receive Date: 20131205
  Receipt Date: 20131205
  Transmission Date: 20140711
  Serious: No
  Sender: FDA-Public Use
  Company Number: US-ABBVIE-13P-163-1054261-00

PATIENT
  Age: 19 Month
  Sex: 0
  Weight: 14.98 kg

DRUGS (1)
  1. OMNICEF [Suspect]
     Indication: OTITIS MEDIA
     Dates: start: 20130216, end: 20130218

REACTIONS (3)
  - Hypersensitivity [Unknown]
  - Local swelling [Recovering/Resolving]
  - Urticaria [Recovered/Resolved]
